FAERS Safety Report 7051595-3 (Version None)
Quarter: 2010Q4

REPORT INFORMATION
  Report Type: 
  Country: None (occurrence: None)
  Receive Date: 20101019
  Receipt Date: 20101006
  Transmission Date: 20110411
  Serious: Yes (Hospitalization)
  Sender: FDA-Public Use
  Company Number: ZA-SANOFI-AVENTIS-2010SA057072

PATIENT
  Sex: Male

DRUGS (2)
  1. KETEK [Suspect]
     Route: 048
     Dates: start: 20100913, end: 20100913
  2. MESTINON [Concomitant]
     Indication: MYASTHENIA GRAVIS
     Route: 048
     Dates: start: 20050101

REACTIONS (3)
  - DYSPNOEA [None]
  - MEDICATION ERROR [None]
  - OFF LABEL USE [None]
